FAERS Safety Report 9012283 (Version 1)
Quarter: 2012Q4

REPORT INFORMATION
  Report Type: Spontaneous
  Country: US (occurrence: None)
  Receive Date: 20121231
  Receipt Date: 20121231
  Transmission Date: 20130627
  Serious: Yes (Other)
  Sender: FDA-Public Use
  Company Number: KAD201212-000537

PATIENT

DRUGS (10)
  1. TOPOTECAN (TOPOTECAN) [Suspect]
     Route: 042
  2. CYCLOPHOSPHAMIDE (CYCLOPHOSPHAMIDE) [Suspect]
     Route: 042
  3. CISPLATIN (CISPLATIN) (5 MILLIGRAM) (CISPLATIN) [Suspect]
     Route: 042
  4. ETOPOSIDE (ETOPOSIDE) [Suspect]
     Route: 042
  5. MESNA (MESNA) [Suspect]
     Route: 042
  6. DOXORUBICIN (DOXORUBICIN) (DOXORUBICIN) [Suspect]
     Route: 042
  7. VINCRISTINE [Suspect]
     Route: 042
  8. CARBOPLATIN (CARBOPLATIN) [Suspect]
     Route: 042
  9. MELPHALAN (MELPHALAN) [Suspect]
     Route: 042
  10. ISOTRETINOIN [Suspect]
     Route: 042

REACTIONS (2)
  - Toxicity to various agents [None]
  - Haematotoxicity [None]
